FAERS Safety Report 22117652 (Version 1)
Quarter: 2023Q1

REPORT INFORMATION
  Report Type: Other
  Country: US (occurrence: None)
  Receive Date: 20230321
  Receipt Date: 20230321
  Transmission Date: 20230418
  Serious: Yes (Death)
  Sender: FDA-Public Use
  Company Number: US-ROCHE-3294104

PATIENT
  Age: 70 Year
  Sex: Male
  Weight: 75.364 kg

DRUGS (16)
  1. ESBRIET [Suspect]
     Active Substance: PIRFENIDONE
     Indication: Idiopathic pulmonary fibrosis
     Route: 048
     Dates: start: 20220809
  2. AMOXICILLIN [Concomitant]
     Active Substance: AMOXICILLIN
  3. ASPIRIN [Concomitant]
     Active Substance: ASPIRIN
  4. ATENOLOL [Concomitant]
     Active Substance: ATENOLOL
  5. ATORVASTATIN [Concomitant]
     Active Substance: ATORVASTATIN
  6. ZETIA [Concomitant]
     Active Substance: EZETIMIBE
  7. LANTUS SOLOSTAR [Concomitant]
     Active Substance: INSULIN GLARGINE
  8. ISOSORBIDE MONONITRATE [Concomitant]
     Active Substance: ISOSORBIDE MONONITRATE
  9. LIRAGLUTIDE [Concomitant]
     Active Substance: LIRAGLUTIDE
  10. LISINOPRIL [Concomitant]
     Active Substance: LISINOPRIL
  11. MELOXICAM [Concomitant]
     Active Substance: MELOXICAM
  12. METFORMIN [Concomitant]
     Active Substance: METFORMIN HYDROCHLORIDE
     Route: 048
  13. NITROGLYCERIN [Concomitant]
     Active Substance: NITROGLYCERIN
  14. OMEPRAZOLE [Concomitant]
     Active Substance: OMEPRAZOLE
  15. PRASUGREL [Concomitant]
     Active Substance: PRASUGREL
  16. RANOLAZINE [Concomitant]
     Active Substance: RANOLAZINE

REACTIONS (4)
  - Cardiac arrest [Fatal]
  - Dizziness [Unknown]
  - Chest pain [Unknown]
  - Arthralgia [Unknown]
